FAERS Safety Report 7400501-8 (Version None)
Quarter: 2011Q2

REPORT INFORMATION
  Report Type: 
  Country: None (occurrence: None)
  Receive Date: 20110407
  Receipt Date: 20110405
  Transmission Date: 20111010
  Serious: Yes (Other)
  Sender: FDA-Public Use
  Company Number: US-PFIZER INC-2010058695

PATIENT
  Sex: Male
  Weight: 129 kg

DRUGS (2)
  1. ENALAPRIL [Concomitant]
     Dosage: 20 MG, 1X/DAY
  2. SUTENT [Suspect]
     Indication: METASTATIC RENAL CELL CARCINOMA
     Dosage: 50 MG, 1X/DAY, X 28 DAYS Q 42 DAYS
     Route: 048
     Dates: start: 20091111

REACTIONS (6)
  - DEPRESSION [None]
  - MUSCLE SPASMS [None]
  - BLOOD COUNT ABNORMAL [None]
  - BLOOD PRESSURE INCREASED [None]
  - WEIGHT DECREASED [None]
  - ANAEMIA [None]
